FAERS Safety Report 8194862-2 (Version None)
Quarter: 2012Q1

REPORT INFORMATION
  Report Type: 
  Country: None (occurrence: None)
  Receive Date: 20120308
  Receipt Date: 20110511
  Transmission Date: 20120608
  Serious: No
  Sender: FDA-Public Use
  Company Number: US-GLAXOSMITHKLINE-A0926934A

PATIENT
  Age: 46 Year
  Sex: Female

DRUGS (3)
  1. NICORETTE [Suspect]
     Indication: EX-TOBACCO USER
     Route: 002
     Dates: start: 20110508, end: 20110510
  2. NICOTINE POLACRILEX [Suspect]
     Indication: EX-TOBACCO USER
     Route: 002
     Dates: start: 20110101
  3. NICORETTE [Suspect]
     Indication: EX-TOBACCO USER
     Route: 002
     Dates: start: 20040101, end: 20101201

REACTIONS (4)
  - INTENTIONAL DRUG MISUSE [None]
  - TOOTH DISORDER [None]
  - DYSPEPSIA [None]
  - NICOTINE DEPENDENCE [None]
